FAERS Safety Report 12813110 (Version 1)
Quarter: 2016Q4

REPORT INFORMATION
  Report Type: Report from Study
  Country: US (occurrence: US)
  Receive Date: 20161006
  Receipt Date: 20161006
  Transmission Date: 20170207
  Serious: Yes (Hospitalization, Other)
  Sender: FDA-Public Use
  Company Number: US-ROCHE-1274185

PATIENT
  Age: 63 Year
  Sex: Female
  Weight: 62 kg

DRUGS (4)
  1. BEVACIZUMAB [Suspect]
     Active Substance: BEVACIZUMAB
     Indication: MALIGNANT PERITONEAL NEOPLASM
     Dosage: OVER 30-90 MINS. ON DAY 1.?12/DEC/2012, 03/JAN/2013, 04/FEB/2013, 21/FEB/2013, 13/MAR/2013, 03/APR/2
     Route: 042
     Dates: start: 20121121
  2. ABT-888 [Suspect]
     Active Substance: VELIPARIB
     Indication: MALIGNANT PERITONEAL NEOPLASM
     Dosage: ON DAYS -2-5. 12/DEC/2012, 03/JAN/2013, 04/FEB/2013, 21/FEB/2013, 13/MAR/2013,
     Route: 048
     Dates: start: 20121119
  3. CARBOPLATIN. [Suspect]
     Active Substance: CARBOPLATIN
     Indication: MALIGNANT PERITONEAL NEOPLASM
     Dosage: AUC 6 OVER 30 MINTS ON DAY 1. LAST DOSE RECEIVED ON 13/MAR/2013.
     Route: 042
     Dates: end: 20121121
  4. PACLITAXEL. [Suspect]
     Active Substance: PACLITAXEL
     Indication: MALIGNANT PERITONEAL NEOPLASM
     Dosage: OVER 3 HRS ON DAY 1. LAST DOSE RECEIVED ON 13/MAR/2013
     Route: 042
     Dates: start: 20121121

REACTIONS (8)
  - Nausea [Not Recovered/Not Resolved]
  - White blood cell count decreased [Unknown]
  - Small intestinal obstruction [Not Recovered/Not Resolved]
  - Anaemia [Unknown]
  - Hypertension [Unknown]
  - Neutrophil count decreased [Unknown]
  - Abdominal pain [Not Recovered/Not Resolved]
  - Platelet count decreased [Unknown]

NARRATIVE: CASE EVENT DATE: 20130623
